FAERS Safety Report 4885538-5 (Version None)
Quarter: 2005Q4

REPORT INFORMATION
  Report Type: 
  Country: None (occurrence: None)
  Receive Date: 20051220
  Receipt Date: 20041214
  Transmission Date: 20060501
  Serious: Yes (Other)
  Sender: FDA-Public Use
  Company Number: HQWYE038316DEC04

PATIENT
  Age: 39 Year
  Sex: Male
  Weight: 91.25 kg

DRUGS (4)
  1. EFFEXOR XR [Suspect]
     Indication: ANXIETY
     Dosage: SEE IMAGE
     Route: 048
     Dates: start: 20041115, end: 20041121
  2. FLEXERIL [Concomitant]
  3. TRAMADOL HCL [Concomitant]
  4. ACETAMINOPHEN [Concomitant]

REACTIONS (6)
  - BLOOD PRESSURE INCREASED [None]
  - INSOMNIA [None]
  - IRRITABILITY [None]
  - NIGHT SWEATS [None]
  - PARAESTHESIA [None]
  - UNEVALUABLE EVENT [None]
